FAERS Safety Report 17195611 (Version 1)
Quarter: 2019Q4

REPORT INFORMATION
  Report Type: Report from Study
  Country: US (occurrence: US)
  Receive Date: 20191224
  Receipt Date: 20191224
  Transmission Date: 20200122
  Serious: Yes (Disabling, Other)
  Sender: FDA-Public Use
  Company Number: US-AUROBINDO-AUR-APL-2019-107483

PATIENT
  Age: 56 Year

DRUGS (1)
  1. VANCOMYCIN [Suspect]
     Active Substance: VANCOMYCIN
     Indication: ARTHRITIS BACTERIAL
     Dosage: 16 MILLIGRAM/KILOGRAM (16.75 MG/KG)
     Route: 042

REACTIONS (3)
  - Ototoxicity [Unknown]
  - Deafness bilateral [Unknown]
  - Condition aggravated [Unknown]
